FAERS Safety Report 8988844 (Version 2)
Quarter: 2013Q1

REPORT INFORMATION
  Report Type: Spontaneous
  Country: US (occurrence: US)
  Receive Date: 20121228
  Receipt Date: 20130123
  Transmission Date: 20140127
  Serious: Yes (Other)
  Sender: FDA-Public Use
  Company Number: US-TEVA-377956USA

PATIENT
  Sex: 0

DRUGS (5)
  1. COPAXONE [Suspect]
     Indication: MULTIPLE SCLEROSIS
  2. FISH OIL [Concomitant]
  3. HCTZ [Concomitant]
     Dosage: 37.5/12.5MG
  4. OMEGA 3 [Concomitant]
  5. VITAMIN D [Concomitant]

REACTIONS (1)
  - Lymphadenopathy [Not Recovered/Not Resolved]
